FAERS Safety Report 11636835 (Version 2)
Quarter: 2016Q1

REPORT INFORMATION
  Report Type: Spontaneous
  Country: US (occurrence: US)
  Receive Date: 20151016
  Receipt Date: 20160111
  Transmission Date: 20160525
  Serious: No
  Sender: FDA-Public Use
  Company Number: US-GALDERMA-US15005947

PATIENT
  Sex: Female

DRUGS (6)
  1. DIFFERIN [Concomitant]
     Active Substance: ADAPALENE
     Indication: ACNE
     Route: 061
     Dates: start: 201506
  2. SOOLANTRA [Suspect]
     Active Substance: IVERMECTIN
     Indication: ACNE
     Dosage: 1%
     Route: 061
     Dates: start: 20150603, end: 20150812
  3. ANTIAGING FACE WASH [Concomitant]
     Route: 061
  4. OLAY REGENERIST [Concomitant]
     Route: 061
  5. DIFFERIN [Concomitant]
     Active Substance: ADAPALENE
     Dosage: 0.%
     Route: 061
     Dates: start: 20131030
  6. ACTICLATE [Concomitant]
     Active Substance: DOXYCYCLINE HYCLATE
     Dosage: 150 MG
     Route: 061
     Dates: start: 20141024

REACTIONS (4)
  - Product use issue [Not Recovered/Not Resolved]
  - Pruritus [Recovering/Resolving]
  - Drug ineffective for unapproved indication [Not Recovered/Not Resolved]
  - Paraesthesia [Recovering/Resolving]

NARRATIVE: CASE EVENT DATE: 201505
